FAERS Safety Report 5270938-4 (Version None)
Quarter: 2007Q1

REPORT INFORMATION
  Report Type: 
  Country: None (occurrence: None)
  Receive Date: 20070321
  Receipt Date: 20070319
  Transmission Date: 20070707
  Serious: Yes (Hospitalization)
  Sender: FDA-Public Use
  Company Number: FR-JNJFOC-20070304566

PATIENT
  Age: 64 Year
  Sex: Female
  Weight: 54 kg

DRUGS (10)
  1. REMICADE [Suspect]
     Indication: RHEUMATOID ARTHRITIS
     Route: 042
  2. NOVATREX [Concomitant]
     Route: 065
  3. NOVATREX [Concomitant]
     Route: 065
  4. NOVATREX [Concomitant]
     Indication: RHEUMATOID ARTHRITIS
     Route: 065
  5. DIFFU K [Concomitant]
     Route: 065
  6. SPECIAFOLDINE [Concomitant]
     Route: 065
  7. OROCAL D3 [Concomitant]
     Route: 065
  8. OMEPRAZOLE [Concomitant]
     Route: 065
  9. CODOLIPRANE [Concomitant]
     Route: 065
  10. DETENSIEL [Concomitant]
     Route: 065

REACTIONS (2)
  - INFECTION [None]
  - METASTASES TO BREAST [None]
